FAERS Safety Report 9854159 (Version 1)
Quarter: 2014Q1

REPORT INFORMATION
  Report Type: Spontaneous
  Country: IT (occurrence: IT)
  Receive Date: 20140130
  Receipt Date: 20140130
  Transmission Date: 20141002
  Serious: Yes (Death)
  Sender: FDA-Public Use
  Company Number: IT-ROCHE-1340768

PATIENT
  Age: 36 Year
  Sex: Female

DRUGS (2)
  1. RITUXIMAB [Suspect]
     Indication: NEPHROTIC SYNDROME
     Route: 042
  2. RITUXIMAB [Suspect]
     Indication: CUTANEOUS VASCULITIS

REACTIONS (1)
  - Immune reconstitution inflammatory syndrome [Fatal]
